FAERS Safety Report 9690512 (Version 5)
Quarter: 2014Q1

REPORT INFORMATION
  Report Type: Spontaneous
  Country: GB (occurrence: GB)
  Receive Date: 20131115
  Receipt Date: 20140225
  Transmission Date: 20141002
  Serious: Yes (Hospitalization, Other)
  Sender: FDA-Public Use
  Company Number: GB-NOVOPROD-391754

PATIENT
  Age: 84 Year
  Sex: Female
  Weight: 68.5 kg

DRUGS (4)
  1. NOVOMIX 30 PENFILL [Suspect]
     Indication: TYPE 2 DIABETES MELLITUS
     Dosage: 60 U, QD (25 AM + 35 PM)
  2. NOVOMIX 30 PENFILL [Suspect]
     Dosage: 40 U, QD (18 AM + 22 PM)
     Dates: start: 20100811, end: 20131121
  3. TRAVOPROST [Concomitant]
     Indication: NORMAL TENSION GLAUCOMA
     Dosage: 2.5 ML, QD (1 DROP IN EACH EYE AT NIGHT)
     Dates: start: 20080609, end: 20131128
  4. TRAVOPROST [Concomitant]
     Dosage: 2.5 ML, QD (1 DROP EACH EYE AT NIGHT)
     Dates: start: 20131128

REACTIONS (9)
  - Pneumothorax [Recovered/Resolved]
  - Hypoglycaemia [Recovered/Resolved]
  - Hypoglycaemic coma [Recovered/Resolved]
  - Anxiety [Recovered/Resolved]
  - Urine output increased [Recovered/Resolved]
  - Pollakiuria [Recovered/Resolved]
  - Thirst [Recovered/Resolved]
  - Hypoglycaemia [Recovered/Resolved]
  - Incorrect dose administered by device [Recovered/Resolved]
